FAERS Safety Report 15984820 (Version 2)
Quarter: 2019Q1

REPORT INFORMATION
  Report Type: Spontaneous
  Country: US (occurrence: US)
  Receive Date: 20190220
  Receipt Date: 20190313
  Transmission Date: 20190418
  Serious: Yes (Other)
  Sender: FDA-Public Use
  Company Number: US-AKORN PHARMACEUTICALS-2019AKN00254

PATIENT
  Age: 16 Year
  Sex: Male
  Weight: 120.18 kg

DRUGS (6)
  1. MYORISAN [Suspect]
     Active Substance: ISOTRETINOIN
     Dosage: 40 MG, 1X/DAY (WITH 30 MG; 70 MG TOTAL DOSE)
     Route: 048
     Dates: start: 20181205, end: 20190205
  2. CLARAVIS [Suspect]
     Active Substance: ISOTRETINOIN
     Indication: ACNE
     Dosage: UNK, 1X/DAY
     Route: 048
     Dates: start: 20190107, end: 20190205
  3. MYORISAN [Suspect]
     Active Substance: ISOTRETINOIN
     Indication: ACNE
     Dosage: UNK
     Route: 048
     Dates: start: 20181101, end: 20181205
  4. MYORISAN [Suspect]
     Active Substance: ISOTRETINOIN
     Indication: ACNE
     Dosage: 30 MG, 1X/DAY
     Route: 048
     Dates: start: 20181002, end: 20181205
  5. MYORISAN [Suspect]
     Active Substance: ISOTRETINOIN
     Dosage: UNK, 1X/DAY
     Route: 048
     Dates: start: 20190104, end: 20190205
  6. MYORISAN [Suspect]
     Active Substance: ISOTRETINOIN
     Dosage: 30 MG, 1X/DAY (WITH 40 MG; TOTAL 70 MG DOSE)
     Route: 048
     Dates: start: 20181205, end: 20190104

REACTIONS (3)
  - Depression [Unknown]
  - Off label use [Recovered/Resolved]
  - Mood altered [Unknown]

NARRATIVE: CASE EVENT DATE: 20181002
